FAERS Safety Report 9501799 (Version 1)
Quarter: 2013Q3

REPORT INFORMATION
  Report Type: Spontaneous
  Country: LU (occurrence: LU)
  Receive Date: 20130905
  Receipt Date: 20130905
  Transmission Date: 20140515
  Serious: Yes (Hospitalization)
  Sender: FDA-Public Use
  Company Number: LU-B.I. PHARMACEUTICALS,INC./RIDGEFIELD-2013-BI-27252BL

PATIENT
  Age: 87 Year
  Sex: Female

DRUGS (6)
  1. MICARDIS [Suspect]
     Dates: start: 20130729
  2. MICARDIS [Suspect]
  3. FORLAX [Concomitant]
  4. PANSITRATE [Concomitant]
  5. MOTILIUM [Concomitant]
  6. NEXIAM [Concomitant]

REACTIONS (1)
  - Hyponatraemia [Unknown]
